FAERS Safety Report 7387678-8 (Version None)
Quarter: 2011Q1

REPORT INFORMATION
  Report Type: 
  Country: None (occurrence: None)
  Receive Date: 20110331
  Receipt Date: 20100827
  Transmission Date: 20110831
  Serious: Yes (Other)
  Sender: FDA-Public Use
  Company Number: US-BAYER-201032531NA

PATIENT
  Sex: Female
  Weight: 113.38 kg

DRUGS (4)
  1. OCELLA [Suspect]
     Dosage: UNK UNK, UNK
     Route: 048
     Dates: start: 20081201
  2. PAXIL [Concomitant]
  3. YASMIN [Suspect]
     Dosage: UNK UNK, UNK
     Route: 048
     Dates: start: 20060101, end: 20090605
  4. LEVOTHYROXINE SODIUM [Concomitant]
     Indication: BASEDOW'S DISEASE

REACTIONS (7)
  - ABDOMINAL PAIN [None]
  - CHOLECYSTITIS ACUTE [None]
  - DIARRHOEA [None]
  - ARTERIAL THROMBOSIS LIMB [None]
  - ABDOMINAL PAIN UPPER [None]
  - VOMITING [None]
  - DEEP VEIN THROMBOSIS [None]
